FAERS Safety Report 20906131 (Version 1)
Quarter: 2022Q2

REPORT INFORMATION
  Report Type: Spontaneous
  Country: US (occurrence: US)
  Receive Date: 20220602
  Receipt Date: 20220602
  Transmission Date: 20220721
  Serious: No
  Sender: FDA-Public Use
  Company Number: US-COLLEGIUM PHARMACEUTICAL, INC.-2021CGM01004

PATIENT
  Sex: Male
  Weight: 89.796 kg

DRUGS (9)
  1. XTAMPZA ER [Suspect]
     Active Substance: OXYCODONE
     Indication: Pain management
     Dosage: 27 MG
     Route: 048
     Dates: start: 202108, end: 20210907
  2. XTAMPZA ER [Suspect]
     Active Substance: OXYCODONE
     Dosage: 27 MG, 1X/DAY
     Route: 048
     Dates: start: 20210907, end: 202109
  3. NORVASC [Concomitant]
     Active Substance: AMLODIPINE BESYLATE
  4. QUINAPRIL [Concomitant]
     Active Substance: QUINAPRIL
  5. ASPIRIN [Concomitant]
     Active Substance: ASPIRIN
  6. GABAPENTIN [Concomitant]
     Active Substance: GABAPENTIN
  7. ATORVASTATIN [Concomitant]
     Active Substance: ATORVASTATIN
  8. FOLIC ACID [Concomitant]
     Active Substance: FOLIC ACID
  9. BACLOFEN [Concomitant]
     Active Substance: BACLOFEN
     Dosage: UNK, 3X/DAY

REACTIONS (5)
  - Abnormal weight gain [Recovering/Resolving]
  - Fluid retention [Unknown]
  - Dyspnoea [Recovered/Resolved]
  - Therapeutic product effect incomplete [Recovered/Resolved]
  - Off label use [Recovered/Resolved]

NARRATIVE: CASE EVENT DATE: 20210101
